FAERS Safety Report 6866601 (Version 3)
Quarter: 2013Q4

REPORT INFORMATION
  Report Type: Spontaneous
  Country: FR (occurrence: None)
  Receive Date: 20081212
  Receipt Date: 20131023
  Transmission Date: 20140711
  Serious: Yes (Life-Threatening, Hospitalization, Other)
  Sender: FDA-Public Use
  Company Number: JPI-P-005541

PATIENT
  Age: 76 Year
  Sex: Male

DRUGS (8)
  1. XYREM [Suspect]
     Indication: CATAPLEXY
     Dosage: 4.5 GM (2.25 GM, 2 IN 1 D), ORAL; 4 GM (2 GM, 2 IN 1 D), ORAL
     Route: 048
     Dates: start: 20081017, end: 200810
  2. XYREM [Suspect]
     Indication: SOMNOLENCE
     Dosage: 4.5 GM (2.25 GM, 2 IN 1 D), ORAL; 4 GM (2 GM, 2 IN 1 D), ORAL
     Route: 048
     Dates: start: 20081017, end: 200810
  3. XYREM [Suspect]
     Indication: POOR QUALITY SLEEP
     Dosage: 4.5 GM (2.25 GM, 2 IN 1 D), ORAL; 4 GM (2 GM, 2 IN 1 D), ORAL
     Route: 048
     Dates: start: 20081017, end: 200810
  4. ACETYLSALICYLATE LYSINE [Suspect]
     Indication: PRODUCT USED FOR UNKNOWN INDICATION
  5. TRIMETAZIDINE DIHYDROCHLORIDE [Suspect]
     Indication: PRODUCT USED FOR UNKNOWN INDICATION
  6. ATORVASTATIN CALCIUM [Suspect]
     Indication: HYPERCHOLESTEROLAEMIA
  7. ALLOPURINOL [Concomitant]
  8. CLOPIDOGREL [Concomitant]

REACTIONS (5)
  - Myocardial infarction [None]
  - Headache [None]
  - Fatigue [None]
  - Dizziness [None]
  - Sensation of heaviness [None]
